FAERS Safety Report 18511119 (Version 1)
Quarter: 2020Q4

REPORT INFORMATION
  Report Type: Spontaneous
  Country: US (occurrence: US)
  Receive Date: 20201117
  Receipt Date: 20201117
  Transmission Date: 20210114
  Serious: No
  Sender: FDA-Public Use
  Company Number: US-PFIZER INC-2020449495

PATIENT
  Age: 53 Year
  Sex: Female
  Weight: 83.9 kg

DRUGS (2)
  1. XELJANZ XR [Suspect]
     Active Substance: TOFACITINIB CITRATE
     Indication: PSORIATIC ARTHROPATHY
     Dosage: 11 MG, DAILY
     Route: 048
     Dates: start: 202005
  2. VITAMIN D [Suspect]
     Active Substance: VITAMIN D NOS
     Dosage: UNK

REACTIONS (1)
  - Fatigue [Unknown]
